FAERS Safety Report 24018228 (Version 2)
Quarter: 2024Q4

REPORT INFORMATION
  Report Type: Report from Study
  Country: US (occurrence: US)
  Receive Date: 20240627
  Receipt Date: 20241025
  Transmission Date: 20250114
  Serious: Yes (Hospitalization)
  Sender: AMGEN
  Company Number: US-AMGEN-USASP2024125433

PATIENT
  Age: 82 Year
  Sex: Female

DRUGS (2)
  1. EVENITY [Suspect]
     Active Substance: ROMOSOZUMAB-AQQG
     Indication: Osteoporosis
     Dosage: UNK UNK, QMO
     Route: 065
     Dates: start: 2024
  2. EVENITY [Suspect]
     Active Substance: ROMOSOZUMAB-AQQG
     Dosage: UNK UNK, QMO
     Route: 065
     Dates: start: 202408

REACTIONS (3)
  - Arthritis [Recovering/Resolving]
  - Iliotibial band syndrome [Not Recovered/Not Resolved]
  - Bursitis [Unknown]

NARRATIVE: CASE EVENT DATE: 20240401
